FAERS Safety Report 19485253 (Version 1)
Quarter: 2021Q3

REPORT INFORMATION
  Report Type: Spontaneous
  Country: HR (occurrence: HR)
  Receive Date: 20210702
  Receipt Date: 20210702
  Transmission Date: 20211014
  Serious: Yes (Hospitalization, Other)
  Sender: FDA-Public Use
  Company Number: HR-TEVA-2021-HR-1928615

PATIENT
  Age: 66 Year
  Sex: Male

DRUGS (3)
  1. FLUOROURACIL. [Suspect]
     Active Substance: FLUOROURACIL
     Indication: COLON CANCER
     Dosage: FOLFOX REGIMEN
     Route: 065
  2. FOLINIC ACID [Suspect]
     Active Substance: LEUCOVORIN
     Indication: COLON CANCER
     Dosage: FOLFOX REGIMEN
     Route: 065
  3. OXALIPLATIN. [Suspect]
     Active Substance: OXALIPLATIN
     Indication: COLON CANCER
     Dosage: FOLFOX REGIMEN
     Route: 065

REACTIONS (3)
  - Neuropathy peripheral [Unknown]
  - Interstitial lung disease [Recovering/Resolving]
  - Pulmonary fibrosis [Recovering/Resolving]
